FAERS Safety Report 4783117-1 (Version None)
Quarter: 2005Q3

REPORT INFORMATION
  Report Type: 
  Country: None (occurrence: None)
  Receive Date: 20050928
  Receipt Date: 20050928
  Transmission Date: 20060218
  Serious: Yes (Hospitalization)
  Sender: FDA-Public Use
  Company Number: None

PATIENT
  Age: 63 Year
  Sex: Female
  Weight: 79 kg

DRUGS (11)
  1. CUBICIN [Suspect]
     Indication: STAPHYLOCOCCAL BACTERAEMIA
     Dosage: 480 MG Q 24 HOURS IVPB
     Route: 042
     Dates: start: 20050912, end: 20050920
  2. VANCOMYCIN [Concomitant]
  3. PREDNISONE [Concomitant]
  4. POTASSIUM CHLORIDE [Concomitant]
  5. AMIODARONE HCL [Concomitant]
  6. INSULIN [Concomitant]
  7. ZESTORETIC [Concomitant]
  8. RIFAMPIN [Concomitant]
  9. LOVENOX [Concomitant]
  10. PEPCID [Concomitant]
  11. LIPITOR [Concomitant]

REACTIONS (5)
  - BRAIN NATRIURETIC PEPTIDE INCREASED [None]
  - CARDIOMYOPATHY [None]
  - HEART RATE INCREASED [None]
  - MYALGIA [None]
  - MYOPATHY [None]
